FAERS Safety Report 9732599 (Version 4)
Quarter: 2014Q1

REPORT INFORMATION
  Report Type: Spontaneous
  Country: US (occurrence: US)
  Receive Date: 20131205
  Receipt Date: 20140213
  Transmission Date: 20141002
  Serious: Yes (Other)
  Sender: FDA-Public Use
  Company Number: US-JNJFOC-20131115820

PATIENT
  Age: 81 Year
  Sex: Female
  Weight: 47.63 kg

DRUGS (4)
  1. XARELTO [Suspect]
     Indication: CEREBROVASCULAR ACCIDENT PROPHYLAXIS
     Route: 048
     Dates: start: 2012
  2. XARELTO [Suspect]
     Indication: ATRIAL FIBRILLATION
     Route: 048
     Dates: start: 2012
  3. LUMIGAN [Concomitant]
     Indication: GLAUCOMA
     Route: 048
  4. VITAMINE B12 [Concomitant]
     Route: 030

REACTIONS (2)
  - Atrial fibrillation [Recovered/Resolved]
  - Epistaxis [Recovered/Resolved]
